FAERS Safety Report 8581174 (Version 3)
Quarter: 2013Q4

REPORT INFORMATION
  Report Type: Spontaneous
  Country: US (occurrence: US)
  Receive Date: 20120525
  Receipt Date: 20131108
  Transmission Date: 20140711
  Serious: Yes (Disabling)
  Sender: FDA-Public Use
  Company Number: US-009507513-1205USA02259

PATIENT
  Age: 60 Year
  Sex: Female
  Weight: 77.55 kg

DRUGS (15)
  1. ZOCOR [Suspect]
     Indication: BLOOD CHOLESTEROL INCREASED
     Dosage: 1/2 TABLET QOD
     Route: 048
     Dates: start: 20110718
  2. ZOCOR [Suspect]
     Dosage: 10 MG, QD
     Route: 048
     Dates: start: 20110919, end: 20111017
  3. ZOCOR [Suspect]
     Dosage: 10 MG, QOD
     Route: 048
  4. ZOCOR [Suspect]
     Dosage: 1/2 TABLET, QD
     Route: 048
  5. CLIMARA [Concomitant]
     Indication: HORMONE REPLACEMENT THERAPY
     Dosage: PATCH, 0,075
     Route: 061
     Dates: start: 1997
  6. ATENOLOL [Concomitant]
     Indication: LABILE HYPERTENSION
     Dosage: 25 MG, QD
     Route: 048
     Dates: start: 2010, end: 201112
  7. BISOPROLOL [Concomitant]
     Indication: LABILE HYPERTENSION
     Dates: start: 201112
  8. SYNTHROID [Concomitant]
     Indication: HYPOTHYROIDISM
     Dosage: 75 ?G, QD
     Route: 048
     Dates: start: 2004
  9. ZYRTEC [Concomitant]
     Indication: HYPERSENSITIVITY
     Dosage: 10 MG, QD
     Route: 048
     Dates: start: 2002
  10. DEXILANT [Concomitant]
     Indication: GASTROOESOPHAGEAL REFLUX DISEASE
     Dosage: 60 MG, QD
     Route: 047
     Dates: start: 20110916
  11. NOW COQ10 [Concomitant]
     Dosage: UNK UNK, QD
     Route: 048
  12. FIBERCON [Concomitant]
     Dosage: TABS 2, QD
  13. POSTURE D [Concomitant]
     Dosage: 10 MG, QD
  14. VITAMIN B COMPLEX [Concomitant]
     Dosage: UNK UNK, QD
  15. ASPIRIN [Concomitant]

REACTIONS (13)
  - Lethargy [Recovered/Resolved]
  - Wrong technique in drug usage process [Unknown]
  - Cognitive disorder [Recovered/Resolved]
  - Disturbance in attention [Recovered/Resolved]
  - Impaired work ability [Recovered/Resolved]
  - Feeling abnormal [Recovered/Resolved]
  - Mental impairment [Recovered/Resolved]
  - Dyskinesia [Recovered/Resolved]
  - Burnout syndrome [Recovered/Resolved]
  - Fatigue [Recovered/Resolved]
  - Muscle spasms [Recovered/Resolved]
  - Pain in extremity [Recovered/Resolved]
  - Sleep disorder [Recovered/Resolved]
